FAERS Safety Report 5048448-9 (Version None)
Quarter: 2006Q3

REPORT INFORMATION
  Report Type: 
  Country: None (occurrence: None)
  Receive Date: 20060703
  Receipt Date: 20060619
  Transmission Date: 20061208
  Serious: Yes (Death)
  Sender: FDA-Public Use
  Company Number: 200606IM000363

PATIENT
  Age: 69 Year
  Sex: Female

DRUGS (1)
  1. ACTIMMUNE [Suspect]
     Indication: PULMONARY FIBROSIS
     Dosage: 200 UG, TIW, SUBCUTANEOUS
     Route: 058
     Dates: start: 20060504, end: 20060601

REACTIONS (1)
  - DEATH [None]
